FAERS Safety Report 10049078 (Version 9)
Quarter: 2019Q4

REPORT INFORMATION
  Report Type: Spontaneous
  Country: US (occurrence: US)
  Receive Date: 20140331
  Receipt Date: 20191219
  Transmission Date: 20200122
  Serious: Yes (Hospitalization, Other)
  Sender: FDA-Public Use
  Company Number: US-UCBSA-116006

PATIENT
  Age: 50 Year
  Sex: Female
  Weight: 47.62 kg

DRUGS (4)
  1. CIMZIA [Suspect]
     Active Substance: CERTOLIZUMAB PEGOL
     Indication: POUCHITIS
     Dosage: 200 MG, WEEKLY (QW), 108974 AND ??/MAR/2016 FOR 10-MAR-2014 INJECTION
     Dates: start: 20140521
  2. ENTACORT [Concomitant]
     Indication: CROHN^S DISEASE
     Dosage: 3 MG, 2X/DAY (BID)
     Route: 048
  3. CIMZIA [Suspect]
     Active Substance: CERTOLIZUMAB PEGOL
     Indication: CROHN^S DISEASE
     Dosage: 400 MG, EV 4 WEEKS
     Route: 058
     Dates: start: 20140224, end: 201403
  4. VENLAFAXINE [Concomitant]
     Active Substance: VENLAFAXINE HYDROCHLORIDE
     Indication: DEPRESSION
     Dosage: 75 MG, ONCE DAILY (QD)
     Route: 048

REACTIONS (6)
  - Clostridium difficile infection [Recovered/Resolved]
  - Fatigue [Recovered/Resolved]
  - Pyrexia [Recovered/Resolved]
  - Diarrhoea [Recovered/Resolved]
  - Abdominal pain [Recovered/Resolved]
  - Drug ineffective [Unknown]

NARRATIVE: CASE EVENT DATE: 2014
